FAERS Safety Report 19270840 (Version 2)
Quarter: 2021Q2

REPORT INFORMATION
  Report Type: Spontaneous
  Country: US (occurrence: US)
  Receive Date: 20210518
  Receipt Date: 20210521
  Transmission Date: 20210717
  Serious: Yes (Hospitalization)
  Sender: FDA-Public Use
  Company Number: US-009507513-2105USA002843

PATIENT

DRUGS (1)
  1. PREVYMIS [Suspect]
     Active Substance: LETERMOVIR
     Indication: LUNG TRANSPLANT
     Dosage: 480 MILLIGRAM, DAILY
     Route: 048

REACTIONS (2)
  - Adverse event [Not Recovered/Not Resolved]
  - Dysphagia [Not Recovered/Not Resolved]
